FAERS Safety Report 18549957 (Version 1)
Quarter: 2020Q4

REPORT INFORMATION
  Report Type: Spontaneous
  Country: US (occurrence: US)
  Receive Date: 20201126
  Receipt Date: 20201126
  Transmission Date: 20210114
  Serious: Yes (Hospitalization, Other)
  Sender: FDA-Public Use
  Company Number: US-ABBVIE-20K-163-3659430-00

PATIENT
  Age: 47 Year
  Sex: Female
  Weight: 59.02 kg

DRUGS (2)
  1. SYNTHROID [Suspect]
     Active Substance: LEVOTHYROXINE SODIUM
     Indication: HYPOTHYROIDISM
     Route: 048
     Dates: start: 2008
  2. DEXILANT [Concomitant]
     Active Substance: DEXLANSOPRAZOLE
     Indication: GASTROOESOPHAGEAL REFLUX DISEASE

REACTIONS (10)
  - Stent placement [Recovered/Resolved]
  - Myocardial infarction [Recovered/Resolved]
  - Cognitive disorder [Unknown]
  - Weight increased [Not Recovered/Not Resolved]
  - Periarthritis [Recovered/Resolved]
  - Coronary artery bypass [Unknown]
  - Visual impairment [Unknown]
  - Speech disorder [Unknown]
  - Cerebrovascular insufficiency [Recovered/Resolved]
  - Circulatory collapse [Unknown]

NARRATIVE: CASE EVENT DATE: 2016
